FAERS Safety Report 12295019 (Version 2)
Quarter: 2016Q2

REPORT INFORMATION
  Report Type: Spontaneous
  Country: US (occurrence: US)
  Receive Date: 20160422
  Receipt Date: 20160606
  Transmission Date: 20160815
  Serious: No
  Sender: FDA-Public Use
  Company Number: US-GLAXOSMITHKLINE-US2016047561

PATIENT
  Sex: Female
  Weight: 106.58 kg

DRUGS (2)
  1. TANZEUM [Suspect]
     Active Substance: ALBIGLUTIDE
     Indication: TYPE 2 DIABETES MELLITUS
     Dosage: 50 MG, UNK
  2. BYDUREON [Suspect]
     Active Substance: EXENATIDE
     Indication: PRODUCT USED FOR UNKNOWN INDICATION

REACTIONS (8)
  - Rash pruritic [Unknown]
  - Nausea [Unknown]
  - Injection site pruritus [Unknown]
  - Gastrointestinal disorder [Unknown]
  - Rash erythematous [Unknown]
  - Rash papular [Unknown]
  - Injection site reaction [Unknown]
  - Injection site rash [Unknown]
